FAERS Safety Report 4596329-7 (Version None)
Quarter: 2005Q1

REPORT INFORMATION
  Report Type: 
  Country: None (occurrence: None)
  Receive Date: 20050228
  Receipt Date: 20050221
  Transmission Date: 20050727
  Serious: Yes (Hospitalization)
  Sender: FDA-Public Use
  Company Number: TCI2005A01309

PATIENT
  Age: 59 Year
  Sex: Male

DRUGS (3)
  1. ACTOS [Suspect]
     Indication: DIABETES MELLITUS
     Dosage: 15 MG (15 MG, 1 D) PER ORAL
     Route: 048
     Dates: start: 20050117, end: 20050121
  2. BUFFERIN [Suspect]
     Dosage: 81 MG (81 MG, 1 D) PER ORAL
     Route: 048
  3. NACKLESS                          L (DILTIAZEM HYDROCHLORIDE) [Suspect]
     Dosage: 200 MG (200 MG, 1 D) PER ORAL
     Route: 048

REACTIONS (1)
  - ENTEROCOLITIS HAEMORRHAGIC [None]
